FAERS Safety Report 19889990 (Version 3)
Quarter: 2021Q4

REPORT INFORMATION
  Report Type: Spontaneous
  Country: TW (occurrence: TW)
  Receive Date: 20210928
  Receipt Date: 20211103
  Transmission Date: 20220303
  Serious: Yes (Other)
  Sender: FDA-Public Use
  Company Number: NVSC2021TW217522

PATIENT
  Age: 2 Year
  Sex: Male

DRUGS (4)
  1. CYCLOSPORINE [Suspect]
     Active Substance: CYCLOSPORINE
     Indication: Chronic graft versus host disease
     Dosage: UNK (FLUCTUATING ACCORDING TO CLINICAL CONDITION)
     Route: 048
     Dates: start: 20200404, end: 20210327
  2. TACROLIMUS [Concomitant]
     Active Substance: TACROLIMUS
     Indication: Chronic graft versus host disease
     Dosage: UNK (FLUCTUATING ACCORDING TO CLINICAL CONDITION)
     Route: 048
     Dates: start: 20210327
  3. SIROLIMUS [Concomitant]
     Active Substance: SIROLIMUS
     Indication: Chronic graft versus host disease
     Dosage: UNK (FLUCTUATING ACCORDING TO CLINICAL CONDITION)
     Route: 048
     Dates: start: 20210529
  4. PREDNISONE [Concomitant]
     Active Substance: PREDNISONE
     Indication: Chronic graft versus host disease
     Dosage: UNK (FLUCTUATING ACCORDING TO CLINICAL CONDITION)
     Route: 048
     Dates: start: 20210424

REACTIONS (6)
  - Renal impairment [Not Recovered/Not Resolved]
  - Delayed graft function [Not Recovered/Not Resolved]
  - Graft versus host disease in lung [Unknown]
  - Chronic graft versus host disease [Not Recovered/Not Resolved]
  - Diarrhoea [Unknown]
  - Weight decreased [Unknown]

NARRATIVE: CASE EVENT DATE: 20200801
